FAERS Safety Report 5542024-7 (Version None)
Quarter: 2007Q4

REPORT INFORMATION
  Report Type: 
  Country: None (occurrence: None)
  Receive Date: 20071210
  Receipt Date: 20071204
  Transmission Date: 20080405
  Serious: Yes (Life-Threatening, Hospitalization)
  Sender: FDA-Public Use
  Company Number: FR-ASTRAZENECA-2007CG01580

PATIENT
  Age: 18747 Day
  Sex: Male

DRUGS (7)
  1. DIPRIVAN [Suspect]
     Route: 042
     Dates: start: 20071011, end: 20071011
  2. VIALEBEX [Suspect]
     Route: 042
     Dates: start: 20071011, end: 20071011
  3. SUFENTA [Suspect]
     Route: 042
     Dates: start: 20071011, end: 20071011
  4. NIMBEX [Suspect]
     Route: 042
     Dates: start: 20071011, end: 20071011
  5. VOLUVEN [Suspect]
     Route: 042
     Dates: start: 20071011, end: 20071011
  6. EPHEDRINE [Suspect]
     Route: 042
     Dates: start: 20071011, end: 20071011
  7. ROCEPHIN [Suspect]
     Route: 042
     Dates: start: 20071011, end: 20071011

REACTIONS (7)
  - ERYTHEMA [None]
  - EYELID OEDEMA [None]
  - FACE OEDEMA [None]
  - HYPOTENSION [None]
  - LIP OEDEMA [None]
  - RASH [None]
  - TONGUE OEDEMA [None]
